FAERS Safety Report 12009307 (Version 1)
Quarter: 2016Q1

REPORT INFORMATION
  Report Type: Spontaneous
  Country: AU (occurrence: AU)
  Receive Date: 20160205
  Receipt Date: 20160205
  Transmission Date: 20160526
  Serious: Yes (Death)
  Sender: FDA-Public Use
  Company Number: AU-009507513-1602AUS002305

PATIENT
  Age: 84 Year
  Sex: Female

DRUGS (9)
  1. VALIUM [Interacting]
     Active Substance: DIAZEPAM
     Indication: SEDATION
  2. WARFARIN [Interacting]
     Active Substance: WARFARIN
  3. TEGRETOL [Interacting]
     Active Substance: CARBAMAZEPINE
     Indication: EPILEPSY
  4. AROPAX [Interacting]
     Active Substance: PAROXETINE HYDROCHLORIDE
     Indication: DEPRESSION
  5. ZYPREXA [Interacting]
     Active Substance: OLANZAPINE
     Indication: PSYCHOTIC DISORDER
  6. DIAZEPAM. [Interacting]
     Active Substance: DIAZEPAM
  7. DIGOXIN. [Concomitant]
     Active Substance: DIGOXIN
     Indication: ATRIAL FIBRILLATION
  8. AVANZA [Suspect]
     Active Substance: MIRTAZAPINE
     Indication: DEPRESSION
     Dosage: UNKNOWN
     Route: 048
  9. OXAZEPAM. [Interacting]
     Active Substance: OXAZEPAM

REACTIONS (7)
  - Paranoia [Fatal]
  - Fall [Fatal]
  - Accidental overdose [Fatal]
  - Haemorrhage intracranial [Fatal]
  - Drug interaction [Fatal]
  - Upper limb fracture [Fatal]
  - Hallucination [Fatal]

NARRATIVE: CASE EVENT DATE: 20140814
